FAERS Safety Report 5279677-7 (Version None)
Quarter: 2007Q1

REPORT INFORMATION
  Report Type: 
  Country: None (occurrence: None)
  Receive Date: 20070323
  Receipt Date: 20070309
  Transmission Date: 20070707
  Serious: Yes (Death)
  Sender: FDA-Public Use
  Company Number: 2007S1002057

PATIENT
  Age: 62 Year
  Sex: Male
  Weight: 77.1115 kg

DRUGS (2)
  1. ATENOLOL [Suspect]
     Indication: HEART RATE INCREASED
     Dosage: 50 MG;ONCE;ORAL
     Route: 048
     Dates: start: 20061127, end: 20061127
  2. MOXIFLOXACIN (CON.) [Concomitant]

REACTIONS (15)
  - ABDOMINAL PAIN [None]
  - ACUTE RESPIRATORY FAILURE [None]
  - ARTERIOSCLEROSIS [None]
  - CARDIAC FAILURE CONGESTIVE [None]
  - CARDIOMYOPATHY [None]
  - COLD SWEAT [None]
  - DYSPNOEA [None]
  - HYPERHIDROSIS [None]
  - HYPOAESTHESIA [None]
  - MYOCARDIAL FIBROSIS [None]
  - MYOCARDIAL INFARCTION [None]
  - PNEUMONIA [None]
  - PULMONARY EMBOLISM [None]
  - PULMONARY INFARCTION [None]
  - VENTRICULAR HYPERTROPHY [None]
